FAERS Safety Report 15570357 (Version 1)
Quarter: 2018Q4

REPORT INFORMATION
  Report Type: Report from Study
  Country: GB (occurrence: GB)
  Receive Date: 20181031
  Receipt Date: 20181031
  Transmission Date: 20190205
  Serious: Yes (Hospitalization)
  Sender: FDA-Public Use
  Company Number: GB-EISAI MEDICAL RESEARCH-EC-2017-032945

PATIENT
  Sex: Female

DRUGS (1)
  1. LENVIMA [Suspect]
     Active Substance: LENVATINIB
     Indication: PRODUCT USED FOR UNKNOWN INDICATION
     Route: 065
     Dates: start: 2017, end: 2018

REACTIONS (5)
  - Cardiac failure [Unknown]
  - White blood cell count increased [Unknown]
  - Urinary tract infection [Unknown]
  - Proteinuria [Unknown]
  - Dysuria [Unknown]

NARRATIVE: CASE EVENT DATE: 2017
